FAERS Safety Report 19510308 (Version 1)
Quarter: 2021Q3

REPORT INFORMATION
  Report Type: Spontaneous
  Country: US (occurrence: US)
  Receive Date: 20210708
  Receipt Date: 20210708
  Transmission Date: 20211014
  Serious: No
  Sender: FDA-Public Use
  Company Number: US-US-PROVELL PHARMACEUTICALS LLC-9249216

PATIENT
  Sex: Female

DRUGS (1)
  1. EUTHYROX [Suspect]
     Active Substance: LEVOTHYROXINE SODIUM
     Indication: PRODUCT USED FOR UNKNOWN INDICATION
     Dosage: DAILY DOSE OF 125 MCG
     Route: 048
     Dates: start: 202012

REACTIONS (5)
  - Skin exfoliation [Recovering/Resolving]
  - Skin fissures [Recovering/Resolving]
  - Skin discomfort [Recovering/Resolving]
  - Sleep disorder [Recovering/Resolving]
  - Skin abrasion [Recovering/Resolving]

NARRATIVE: CASE EVENT DATE: 202012
